FAERS Safety Report 7814822-8 (Version None)
Quarter: 2011Q4

REPORT INFORMATION
  Report Type: 
  Country: None (occurrence: None)
  Receive Date: 20111014
  Receipt Date: 20111006
  Transmission Date: 20120403
  Serious: Yes (Other)
  Sender: FDA-Public Use
  Company Number: PHHY2011JP88791

PATIENT
  Age: 82 Year
  Sex: Female

DRUGS (9)
  1. FLUOROURACIL [Suspect]
     Dosage: 2400 MG/KG, UNK
  2. BEVACIZUMAB [Suspect]
     Indication: RECTAL CANCER RECURRENT
     Dosage: UNK
  3. OXALIPLATIN [Suspect]
     Dosage: 75 MG/KG, UNK
  4. FLUOROURACIL [Suspect]
     Indication: RECTAL CANCER RECURRENT
     Dosage: UNK
  5. LEUCOVORIN CALCIUM [Suspect]
     Indication: RECTAL CANCER RECURRENT
     Dosage: UNK
  6. BEVACIZUMAB [Suspect]
     Dosage: 180 MG/KG, UNK
  7. OXALIPLATIN [Suspect]
     Indication: RECTAL CANCER RECURRENT
     Dosage: UNK
  8. LEUCOVORIN CALCIUM [Suspect]
     Dosage: 225 MG/KG, UNK
  9. FLUOROURACIL [Suspect]
     Dosage: 400 MG/KG, UNK
     Route: 040

REACTIONS (7)
  - METASTASES TO LUNG [None]
  - NEUROLOGICAL SYMPTOM [None]
  - HYPOAESTHESIA [None]
  - HYPERTENSION [None]
  - NEUTROPENIA [None]
  - PROTEINURIA [None]
  - LEUKOPENIA [None]
